FAERS Safety Report 9193473 (Version 1)
Quarter: 2013Q1

REPORT INFORMATION
  Report Type: Report from Study
  Country: DE (occurrence: DE)
  Receive Date: 20130327
  Receipt Date: 20130327
  Transmission Date: 20140127
  Serious: Yes (Congenital Anomaly, Other)
  Sender: FDA-Public Use
  Company Number: DE-UCBSA-8026330

PATIENT
  Sex: Male
  Weight: 3.4 kg

DRUGS (3)
  1. KEPPRA [Suspect]
     Indication: EPILEPSY
     Dosage: DAILY DOSE FREQ.: DAILY
     Route: 064
     Dates: start: 20020331
  2. LAMOTRIGINE [Concomitant]
     Dosage: DAILY DOSE FREQ.: DAILY
     Dates: start: 19991118
  3. VALPROIC ACID [Concomitant]
     Dosage: DAILY DOSE FREQ.: DAILY
     Dates: start: 1992

REACTIONS (2)
  - Hypospadias [Unknown]
  - Foetal exposure during pregnancy [Recovered/Resolved]
